FAERS Safety Report 23421919 (Version 1)
Quarter: 2024Q1

REPORT INFORMATION
  Report Type: Spontaneous
  Country: None (occurrence: US)
  Receive Date: 20240119
  Receipt Date: 20240119
  Transmission Date: 20240409
  Serious: Yes (Life-Threatening)
  Sender: FDA-Public Use
  Company Number: US-Alva-Amco Pharmacal Companies, Inc.-2151561

PATIENT

DRUGS (1)
  1. DIUREX MAX [Suspect]
     Active Substance: PAMABROM
     Indication: Polyuria
     Route: 048

REACTIONS (1)
  - Brief resolved unexplained event [Unknown]
